FAERS Safety Report 17926113 (Version 2)
Quarter: 2021Q4

REPORT INFORMATION
  Report Type: Spontaneous
  Country: US (occurrence: US)
  Receive Date: 20200622
  Receipt Date: 20211108
  Transmission Date: 20220303
  Serious: Yes (Other)
  Sender: FDA-Public Use
  Company Number: US-PFIZER INC-2020240898

PATIENT
  Sex: Female
  Weight: 84.82 kg

DRUGS (1)
  1. NEURONTIN [Suspect]
     Active Substance: GABAPENTIN
     Indication: Post herpetic neuralgia
     Dosage: UNK

REACTIONS (5)
  - Suicidal ideation [Unknown]
  - Neuropathy peripheral [Unknown]
  - Depression [Recovered/Resolved]
  - Gait disturbance [Unknown]
  - Cognitive disorder [Unknown]
